FAERS Safety Report 6311786-3 (Version None)
Quarter: 2009Q3

REPORT INFORMATION
  Report Type: 
  Country: None (occurrence: None)
  Receive Date: 20090813
  Receipt Date: 20090813
  Transmission Date: 20100115
  Serious: Yes (Other)
  Sender: FDA-Public Use
  Company Number: None

PATIENT
  Age: 48 Year
  Sex: Female
  Weight: 99.7913 kg

DRUGS (2)
  1. TRAVATAN [Suspect]
     Indication: EYE DISORDER
     Dosage: 1 DROP EVERY NIGHT EA. EYE
     Dates: start: 20090805, end: 20090811
  2. TRAVATAN [Suspect]
     Indication: GLAUCOMA
     Dosage: 1 DROP EVERY NIGHT EA. EYE
     Dates: start: 20090805, end: 20090811

REACTIONS (4)
  - BLEPHAROSPASM [None]
  - DIPLOPIA [None]
  - EYE IRRITATION [None]
  - VISUAL ACUITY REDUCED [None]
